FAERS Safety Report 8559276-1 (Version None)
Quarter: 2012Q3

REPORT INFORMATION
  Report Type: 
  Country: None (occurrence: None)
  Receive Date: 20120802
  Receipt Date: 20120720
  Transmission Date: 20120928
  Serious: Yes (Hospitalization, Other)
  Sender: FDA-Public Use
  Company Number: US-009507513-1203USA02009

PATIENT

DRUGS (6)
  1. FOSAMAX [Suspect]
     Dosage: 70 MG, UNK
     Route: 048
     Dates: start: 20080201, end: 20100401
  2. FOSAMAX [Suspect]
  3. FOSAMAX [Suspect]
  4. FOSAMAX [Suspect]
     Indication: BACK PAIN
     Dosage: 70 MG, UNK
     Route: 048
     Dates: start: 20050301, end: 20071201
  5. FOSAMAX [Suspect]
     Indication: OSTEOPENIA
     Dosage: 10  MG, QD
     Route: 048
     Dates: start: 20020102, end: 20050201
  6. FOSAMAX [Suspect]
     Dosage: 70 MG, UNK
     Route: 048
     Dates: start: 20080225, end: 20100118

REACTIONS (6)
  - ARTHRITIS [None]
  - MUSCULOSKELETAL DISORDER [None]
  - FEMUR FRACTURE [None]
  - OFF LABEL USE [None]
  - TOOTH DISORDER [None]
  - LOWER LIMB FRACTURE [None]
